FAERS Safety Report 19969300 (Version 1)
Quarter: 2021Q4

REPORT INFORMATION
  Report Type: Spontaneous
  Country: US (occurrence: US)
  Receive Date: 20211019
  Receipt Date: 20211019
  Transmission Date: 20220303
  Serious: No
  Sender: FDA-Public Use
  Company Number: US-DRREDDYS-SPO/USA/21/0142644

PATIENT
  Age: 31 Year
  Sex: Female

DRUGS (1)
  1. ZENATANE [Suspect]
     Active Substance: ISOTRETINOIN
     Indication: Product used for unknown indication
     Dosage: RMA ISSUE DATE?31 MARCH 2021  9:29:13 AM, 04 MAY 2021 5:58:11 PM, 07 JUNE 2021 2:39:11 PM, 15 JULY 2

REACTIONS (1)
  - Arthralgia [Unknown]
